FAERS Safety Report 9363644 (Version 1)
Quarter: 2013Q2

REPORT INFORMATION
  Report Type: Spontaneous
  Country: GB (occurrence: None)
  Receive Date: 20130618
  Receipt Date: 20130618
  Transmission Date: 20140414
  Serious: Yes (Other)
  Sender: FDA-Public Use
  Company Number: GER/UKI/13/0029996

PATIENT
  Age: 77 Year
  Sex: Male
  Weight: 79 kg

DRUGS (10)
  1. ATORVASTATIN [Suspect]
     Indication: PRODUCT USED FOR UNKNOWN INDICATION
     Dates: start: 20121207
  2. ALFUZOSIN (ALFUZOSIN) [Concomitant]
  3. AMLODIPINE (AMLODIPINE) [Concomitant]
  4. ASPIRIN (ACETYLSALICYLIC ACID) [Concomitant]
  5. INDERAL (PROPRANOLOL HYDROCHLORIDE) [Concomitant]
  6. MIGRALEVE (PANADEINE CO) [Concomitant]
  7. SOLIFENACIN SUCCINATE (SOLIFENACIN SUCCINATE) [Concomitant]
  8. TAMSULOSIN HYDROCHLORIDE (TAMSULOSIN HYDROCHLORIDE) [Concomitant]
  9. TEMAZEPAM (TEMAZEPAM) [Concomitant]
  10. ZOLADEX (GOSERELIN) [Concomitant]

REACTIONS (1)
  - Headache [None]
